FAERS Safety Report 8127499-1 (Version None)
Quarter: 2012Q1

REPORT INFORMATION
  Report Type: 
  Country: None (occurrence: None)
  Receive Date: 20120210
  Receipt Date: 20120203
  Transmission Date: 20120608
  Serious: Yes (Hospitalization)
  Sender: FDA-Public Use
  Company Number: US-BAYER-201037087NA

PATIENT
  Age: 22 Year
  Sex: Female
  Weight: 86 kg

DRUGS (10)
  1. HYDROCODONE BITARTRATE AND ACETAMINOPHEN [Concomitant]
  2. ACETAMINOPHEN [Concomitant]
  3. AZITHROMYCIN [Concomitant]
  4. LEXAPRO [Concomitant]
     Indication: DEPRESSION
  5. IBUPROFEN (ADVIL) [Concomitant]
     Dosage: UNK UNK, PRN
  6. YAZ [Suspect]
     Indication: CONTRACEPTION
     Dosage: UNK
     Route: 048
     Dates: start: 20080801, end: 20081029
  7. LEXAPRO [Concomitant]
     Indication: ANXIETY
  8. ALBUTEROL [Concomitant]
     Dosage: UNK UNK, PRN
     Route: 055
  9. EXCEDRIN MIGRAINE CAPLETS [Concomitant]
     Route: 048
  10. EXTRA STRENGTH TYLENOL [Concomitant]
     Dosage: UNK UNK, PRN

REACTIONS (2)
  - PAIN [None]
  - INTRACRANIAL VENOUS SINUS THROMBOSIS [None]
